FAERS Safety Report 5265761-0 (Version None)
Quarter: 2007Q1

REPORT INFORMATION
  Report Type: 
  Country: None (occurrence: None)
  Receive Date: 20061213
  Receipt Date: 20040227
  Transmission Date: 20070707
  Serious: Yes (Other)
  Sender: FDA-Public Use
  Company Number: 2004UW02070

PATIENT
  Age: 81 Year
  Sex: Female
  Weight: 59.4212 kg

DRUGS (8)
  1. IRESSA [Suspect]
     Indication: NON-SMALL CELL LUNG CANCER
     Dates: start: 20031229
  2. ACCURETIC [Concomitant]
  3. NORVASC [Concomitant]
  4. LIPIZIDE [Concomitant]
  5. PROZAC [Concomitant]
  6. PRILOSEC [Concomitant]
  7. LIPITOR [Concomitant]
  8. ASPIRIN [Concomitant]

REACTIONS (1)
  - HAEMOGLOBIN DECREASED [None]
